FAERS Safety Report 15329087 (Version 1)
Quarter: 2018Q3

REPORT INFORMATION
  Report Type: Spontaneous
  Country: RO (occurrence: RO)
  Receive Date: 20180829
  Receipt Date: 20180829
  Transmission Date: 20181010
  Serious: Yes (Death, Other)
  Sender: FDA-Public Use
  Company Number: RO-SUN PHARMACEUTICAL INDUSTRIES LTD-2018RR-182695

PATIENT
  Age: 86 Year
  Sex: Female

DRUGS (4)
  1. LEVETIRACETAM. [Suspect]
     Active Substance: LEVETIRACETAM
     Indication: STATUS EPILEPTICUS
     Dosage: 1000 MG DILUTED IN 100 ML SALINE SOLUTION 0,9%
     Route: 042
  2. DIAZEPAM. [Suspect]
     Active Substance: DIAZEPAM
     Indication: STATUS EPILEPTICUS
     Dosage: 5 MG WITH A DOSE OF 2 MG/MIN, REPEATED ONCE EVERY 10 MINUTES
     Route: 042
  3. LEVETIRACETAM. [Suspect]
     Active Substance: LEVETIRACETAM
     Dosage: CONTINUOUSLY IN PEV WITH 2000MG LEV
     Route: 042
  4. HEPARIN [Suspect]
     Active Substance: HEPARIN SODIUM
     Indication: CEREBRAL VENOUS THROMBOSIS
     Route: 065

REACTIONS (4)
  - Coma [Fatal]
  - Cardiac arrest [Fatal]
  - Drug ineffective [Unknown]
  - Cardiopulmonary failure [Fatal]
